FAERS Safety Report 23074873 (Version 2)
Quarter: 2023Q4

REPORT INFORMATION
  Report Type: Spontaneous
  Country: FI (occurrence: None)
  Receive Date: 20231017
  Receipt Date: 20231101
  Transmission Date: 20240110
  Serious: Yes (Other)
  Sender: FDA-Public Use
  Company Number: FI-ROCHE-3435218

PATIENT
  Sex: Male

DRUGS (6)
  1. VABYSMO [Suspect]
     Active Substance: FARICIMAB\FARICIMAB-SVOA
     Indication: Neovascular age-related macular degeneration
     Route: 050
  2. SIMVASTATIN [Concomitant]
     Active Substance: SIMVASTATIN
  3. FINASTERIDE [Concomitant]
     Active Substance: FINASTERIDE
  4. TERBINAFINE [Concomitant]
     Active Substance: TERBINAFINE
  5. ACRIVASTINE\PSEUDOEPHEDRINE HYDROCHLORIDE [Concomitant]
     Active Substance: ACRIVASTINE\PSEUDOEPHEDRINE HYDROCHLORIDE
     Dosage: 8/60 MG
  6. MIRTAZAPINE [Concomitant]
     Active Substance: MIRTAZAPINE

REACTIONS (1)
  - Retinal haemorrhage [Unknown]
